FAERS Safety Report 24380888 (Version 2)
Quarter: 2024Q4

REPORT INFORMATION
  Report Type: Report from Study
  Country: US (occurrence: US)
  Receive Date: 20240930
  Receipt Date: 20241126
  Transmission Date: 20250115
  Serious: Yes (Other)
  Sender: BIOGEN
  Company Number: US-BIOGEN-2024BI01284274

PATIENT
  Age: 68 Year
  Sex: Female

DRUGS (35)
  1. AVONEX [Suspect]
     Active Substance: INTERFERON BETA-1A
     Indication: Multiple sclerosis
     Route: 050
     Dates: start: 19980101
  2. AVONEX [Suspect]
     Active Substance: INTERFERON BETA-1A
  3. AVONEX [Suspect]
     Active Substance: INTERFERON BETA-1A
  4. AVONEX [Suspect]
     Active Substance: INTERFERON BETA-1A
  5. AVONEX [Suspect]
     Active Substance: INTERFERON BETA-1A
  6. AVONEX [Suspect]
     Active Substance: INTERFERON BETA-1A
  7. AVONEX [Suspect]
     Active Substance: INTERFERON BETA-1A
  8. AVONEX [Suspect]
     Active Substance: INTERFERON BETA-1A
  9. AVONEX [Suspect]
     Active Substance: INTERFERON BETA-1A
  10. AVONEX [Suspect]
     Active Substance: INTERFERON BETA-1A
  11. AVONEX [Suspect]
     Active Substance: INTERFERON BETA-1A
  12. AVONEX [Suspect]
     Active Substance: INTERFERON BETA-1A
  13. AVONEX [Suspect]
     Active Substance: INTERFERON BETA-1A
  14. AVONEX [Suspect]
     Active Substance: INTERFERON BETA-1A
     Indication: Multiple sclerosis
     Route: 050
  15. AVONEX [Suspect]
     Active Substance: INTERFERON BETA-1A
  16. AVONEX [Suspect]
     Active Substance: INTERFERON BETA-1A
  17. AVONEX [Suspect]
     Active Substance: INTERFERON BETA-1A
  18. ATORVASTATIN [Concomitant]
     Active Substance: ATORVASTATIN
     Indication: Product used for unknown indication
     Dosage: 28 MAY 2024 FILLED
     Route: 050
  19. CALCIUM CITRATE [Concomitant]
     Active Substance: CALCIUM CITRATE
     Indication: Product used for unknown indication
     Dosage: 08/05/19 ENTERED?TAKE 1 TABLET(S) TWICE A DAY BY ORAL ROUTE.
     Route: 050
  20. CLOPIDOGREL [Concomitant]
     Active Substance: CLOPIDOGREL BISULFATE
     Indication: Product used for unknown indication
     Dosage: 06/07/24 RENEWED?TAKE 1 TABLET BY MOUTH EVERY DAY
     Route: 050
  21. COENZYME Q10 [Concomitant]
     Active Substance: DIETARY SUPPLEMENT\UBIDECARENONE
     Indication: Product used for unknown indication
     Dosage: 08/05/19 ENTERED?TAKE 1 CAPSULE(S) TWICE A DAY BY ORAL ROUTE.
     Route: 050
  22. DIAZEPAM [Concomitant]
     Active Substance: DIAZEPAM
     Indication: Product used for unknown indication
     Dosage: 11/21/23 FILLED?TAKE 1 TABLET BY MOUTH 30 TO 60 MINUTES BEFORE PROCEDURE
     Route: 050
  23. DICLOFENAC [Concomitant]
     Active Substance: DICLOFENAC
     Indication: Product used for unknown indication
     Dosage: 01/26/22 FILLED,  1 % TOPICAL GEL?APPLY 2 GRAMS TOPICALLY TO THE AFFECTED AREA FOUR TIMES DAILY
     Route: 050
  24. DOCONEXENT\ICOSAPENT [Concomitant]
     Active Substance: DOCONEXENT\ICOSAPENT
     Indication: Product used for unknown indication
     Dosage: 290 MG-430 MG-1.4 GRAM CAPSULE?08/05/19 ENTERED?TAKE 1 CAPSULE(S) EVERY DAY BY ORAL ROUTE.
     Route: 050
  25. LORATADINE [Concomitant]
     Active Substance: LORATADINE
     Indication: Product used for unknown indication
     Dosage: 08/05/19 ENTERED?TAKE 1 TABLET(S) EVERY DAY BY ORAL ROUTE.
     Route: 050
  26. METOPROLOL SUCCINATE [Concomitant]
     Active Substance: METOPROLOL SUCCINATE
     Indication: Product used for unknown indication
     Dosage: 08/06/24 FILED?TAKE 1/2 TABLET BY MOUTH TWICE DAILY
     Route: 050
  27. MUPIROCIN [Concomitant]
     Active Substance: MUPIROCIN
     Indication: Product used for unknown indication
     Dosage: 03/30/24 FILLED?APPLY TO BOTH NOSTRILS TWICE DAILY FOR 5 DAYS PRIOR TO SURGERY
     Route: 050
  28. OLOPATADINE [Concomitant]
     Active Substance: OLOPATADINE
     Indication: Product used for unknown indication
     Dosage: 12/21/20 FILLED
     Route: 050
  29. TELMISARTAN [Concomitant]
     Active Substance: TELMISARTAN
     Indication: Product used for unknown indication
     Dosage: 11/01/23 FILED?TAKE 1 TABLET BY MOUTH EVERY DAY
     Route: 050
  30. TELMISARTAN [Concomitant]
     Active Substance: TELMISARTAN
     Dosage: 01/22/24 FILED?TAKE 1 TABLET BY MOUTH EVERY DAY
     Route: 050
  31. HERBALS\TURMERIC [Concomitant]
     Active Substance: HERBALS\TURMERIC
     Indication: Product used for unknown indication
     Dosage: 07/13/22 ENTERED
     Route: 050
  32. VITAMIN B12 [Concomitant]
     Active Substance: CYANOCOBALAMIN
     Indication: Product used for unknown indication
     Dosage: 08/05/19 ENTERED?TAKE 1 TABLET(S) EVERY DAY BY ORAL ROUTE.
     Route: 050
  33. VITAMIN C [Concomitant]
     Active Substance: ASCORBIC ACID
     Indication: Product used for unknown indication
     Dosage: 08/05/19 ENTERED?TAKE 1 TABLET(S) EVERY DAY BY ORAL ROUTE.
     Route: 050
  34. VITAMIN D2 [Concomitant]
     Active Substance: ERGOCALCIFEROL
     Indication: Product used for unknown indication
     Dosage: 07/13/22 ENTERED
     Route: 050
  35. ZINC [Concomitant]
     Active Substance: ZINC
     Indication: Product used for unknown indication
     Dosage: 07/13/22 ENTERED
     Route: 050

REACTIONS (1)
  - Osteoarthritis [Unknown]

NARRATIVE: CASE EVENT DATE: 20200101
